FAERS Safety Report 7324053 (Version 3)
Quarter: 2013Q1

REPORT INFORMATION
  Report Type: Spontaneous
  Country: FR (occurrence: FR)
  Receive Date: 20100318
  Receipt Date: 20130319
  Transmission Date: 20140127
  Serious: Yes (Hospitalization)
  Sender: FDA-Public Use
  Company Number: FR-JNJFOC-20100303220

PATIENT
  Age: 43 Year
  Sex: Male

DRUGS (3)
  1. REMICADE [Suspect]
     Indication: ANKYLOSING SPONDYLITIS
     Dates: start: 20090925
  2. REMICADE [Suspect]
     Indication: ANKYLOSING SPONDYLITIS
     Dosage: 39TH INFUSION
     Dates: start: 20091127
  3. REMICADE [Suspect]
     Indication: ANKYLOSING SPONDYLITIS
     Dates: start: 2004

REACTIONS (1)
  - Benign renal neoplasm [Recovered/Resolved]
